FAERS Safety Report 24067511 (Version 1)
Quarter: 2024Q3

REPORT INFORMATION
  Report Type: Other
  Country: US (occurrence: US)
  Receive Date: 20240709
  Receipt Date: 20240709
  Transmission Date: 20241017
  Serious: Yes (Hospitalization)
  Sender: ORBION PHARMACEUTICALS
  Company Number: US-OrBion Pharmaceuticals Private Limited-2158972

PATIENT
  Age: 65 Year
  Sex: Female

DRUGS (3)
  1. AMLODIPINE BESYLATE [Suspect]
     Active Substance: AMLODIPINE BESYLATE
     Indication: Intentional overdose
     Route: 048
  2. LISINOPRIL [Concomitant]
     Active Substance: LISINOPRIL
     Route: 065
  3. VALPROATE SODIUM [Concomitant]
     Active Substance: VALPROATE SODIUM
     Route: 065

REACTIONS (7)
  - Vasoplegia syndrome [Recovered/Resolved]
  - Intentional overdose [Unknown]
  - Blood creatinine increased [Recovered/Resolved]
  - Leukocytosis [Recovered/Resolved]
  - Lactic acidosis [Recovered/Resolved]
  - Hyperglycaemia [Recovered/Resolved]
  - Somnolence [Recovered/Resolved]
